FAERS Safety Report 20987813 (Version 3)
Quarter: 2022Q3

REPORT INFORMATION
  Report Type: Spontaneous
  Country: GB (occurrence: GB)
  Receive Date: 20220621
  Receipt Date: 20220714
  Transmission Date: 20221027
  Serious: Yes (Other)
  Sender: FDA-Public Use
  Company Number: GB-NOVARTISPH-NVSC2022GB134815

PATIENT
  Sex: Male

DRUGS (1)
  1. ILARIS [Suspect]
     Active Substance: CANAKINUMAB
     Indication: Myocardial ischaemia
     Dosage: UNK
     Route: 065

REACTIONS (7)
  - Seizure [Unknown]
  - Pain in extremity [Unknown]
  - Illness [Unknown]
  - Restless legs syndrome [Unknown]
  - Electric shock sensation [Unknown]
  - Poor quality sleep [Unknown]
  - Product use in unapproved indication [Unknown]
